FAERS Safety Report 15077228 (Version 7)
Quarter: 2019Q2

REPORT INFORMATION
  Report Type: Report from Study
  Country: US (occurrence: US)
  Receive Date: 20180627
  Receipt Date: 20190508
  Transmission Date: 20190711
  Serious: Yes (Hospitalization)
  Sender: FDA-Public Use
  Company Number: US-ACTELION-A-US2018-174171

PATIENT
  Age: 44 Year
  Sex: Female

DRUGS (34)
  1. LACTULOSE. [Concomitant]
     Active Substance: LACTULOSE
  2. SILDENAFIL. [Concomitant]
     Active Substance: SILDENAFIL
  3. FOLVITE [Concomitant]
     Active Substance: FOLIC ACID
     Dosage: UNK
     Dates: start: 20190314
  4. REGLAN [Concomitant]
     Active Substance: METOCLOPRAMIDE HYDROCHLORIDE
     Dosage: UNK
     Dates: start: 20190314
  5. FOLIC ACID. [Concomitant]
     Active Substance: FOLIC ACID
  6. DOCUSATE SODIUM. [Concomitant]
     Active Substance: DOCUSATE SODIUM
     Dosage: UNK
     Dates: start: 20190314
  7. AMOXICILLIN AND CLAVULA. POTASSIUM [Concomitant]
     Active Substance: AMOXICILLIN\CLAVULANATE POTASSIUM
  8. PHENERGAN [Concomitant]
     Active Substance: PROMETHAZINE HYDROCHLORIDE
  9. OXYGEN. [Concomitant]
     Active Substance: OXYGEN
     Dosage: UNK
     Dates: start: 20180711
  10. TRIAMCINOLONE ACETONIDE. [Concomitant]
     Active Substance: TRIAMCINOLONE ACETONIDE
     Dosage: UNK
     Dates: start: 20190314
  11. OXYCODONE [Concomitant]
     Active Substance: OXYCODONE
     Dosage: 80 MG, TID
     Dates: start: 20180711, end: 20180717
  12. COMBIVENT [Concomitant]
     Active Substance: ALBUTEROL SULFATE\IPRATROPIUM BROMIDE
  13. FUROSEMIDE. [Concomitant]
     Active Substance: FUROSEMIDE
  14. DILAUDID [Concomitant]
     Active Substance: HYDROMORPHONE HYDROCHLORIDE
     Dosage: UNK
     Dates: start: 20180711, end: 20180717
  15. HYDROXYUREA. [Concomitant]
     Active Substance: HYDROXYUREA
  16. TRIAMCINOLONE [Concomitant]
     Active Substance: TRIAMCINOLONE
  17. FLUCONAZOLE. [Concomitant]
     Active Substance: FLUCONAZOLE
  18. POTASSIUM [Concomitant]
     Active Substance: POTASSIUM
  19. PROMETHAZINE [Concomitant]
     Active Substance: PROMETHAZINE\PROMETHAZINE HYDROCHLORIDE
     Dosage: UNK
     Dates: start: 20190314
  20. OPSUMIT [Suspect]
     Active Substance: MACITENTAN
     Indication: PULMONARY HYPERTENSION
     Dosage: 10 MG, QD
     Route: 048
     Dates: start: 20180420
  21. RIOCIGUAT. [Concomitant]
     Active Substance: RIOCIGUAT
     Dosage: UNK
     Dates: start: 20190304
  22. TYLENOL [Concomitant]
     Active Substance: ACETAMINOPHEN
     Dosage: UNK
     Dates: start: 20180711
  23. DILAUDID [Concomitant]
     Active Substance: HYDROMORPHONE HYDROCHLORIDE
     Dosage: UNK
     Route: 042
     Dates: start: 20190304
  24. LOSARTAN. [Concomitant]
     Active Substance: LOSARTAN
  25. ENOXAPARIN [Concomitant]
     Active Substance: ENOXAPARIN
     Dosage: UNK
     Dates: start: 20180711
  26. HYDROCORTISONE. [Concomitant]
     Active Substance: HYDROCORTISONE
  27. OSELTAMIVIR [Concomitant]
     Active Substance: OSELTAMIVIR
  28. AZITHROMYCIN ANHYDROUS. [Concomitant]
     Active Substance: AZITHROMYCIN ANHYDROUS
     Dosage: UNK
     Dates: start: 20190304
  29. ALBUTEROL SULFATE W/IPRATROPIUM BROMIDE [Concomitant]
     Active Substance: ALBUTEROL SULFATE\IPRATROPIUM BROMIDE
     Dosage: UNK
     Dates: start: 20190314
  30. ADVAIR HFA [Concomitant]
     Active Substance: FLUTICASONE PROPIONATE\SALMETEROL XINAFOATE
     Dosage: UNK
     Dates: start: 20190314
  31. IBUPROFEN. [Concomitant]
     Active Substance: IBUPROFEN
     Dosage: UNK
     Dates: start: 20190314
  32. DIPHENHYDRAMINE. [Concomitant]
     Active Substance: DIPHENHYDRAMINE
  33. HYDREA [Concomitant]
     Active Substance: HYDROXYUREA
     Dosage: UNK
     Dates: start: 20180711
  34. TYLENOL [Concomitant]
     Active Substance: ACETAMINOPHEN
     Dosage: UNK
     Route: 042
     Dates: start: 20190304

REACTIONS (18)
  - Sickle cell anaemia with crisis [Recovered/Resolved with Sequelae]
  - Pain [Recovered/Resolved]
  - Pain in extremity [Recovered/Resolved]
  - Pneumonia [Not Recovered/Not Resolved]
  - Headache [Recovered/Resolved with Sequelae]
  - Packed red blood cell transfusion [Recovered/Resolved]
  - Dyspnoea [Recovered/Resolved with Sequelae]
  - Swelling [Recovered/Resolved with Sequelae]
  - Paraesthesia [Recovered/Resolved]
  - Rhinovirus infection [Recovered/Resolved with Sequelae]
  - Vomiting [Recovered/Resolved with Sequelae]
  - Influenza [Not Recovered/Not Resolved]
  - Chest pain [Recovered/Resolved]
  - Hospitalisation [Not Recovered/Not Resolved]
  - Platelet count decreased [Unknown]
  - Haemoglobin decreased [Unknown]
  - Platelet transfusion [Recovered/Resolved]
  - Nausea [Recovered/Resolved with Sequelae]

NARRATIVE: CASE EVENT DATE: 20180525
